FAERS Safety Report 8765481 (Version 1)
Quarter: 2012Q4

REPORT INFORMATION
  Report Type: 
  Country: SE (occurrence: SE)
  Receive Date: 20120831
  Receipt Date: 20120831
  Transmission Date: 20130627
  Serious: Yes (Hospitalization)
  Sender: FDA-Public Use
  Company Number: SE-PFIZER INC-2012211199

PATIENT
  Age: 60 Year
  Sex: Female
  Weight: 72.7 kg

DRUGS (22)
  1. GENOTROPIN [Suspect]
     Indication: HYPOPITUITARISM
     Dosage: 0.8 mg, 7/wk
     Route: 058
     Dates: start: 19980812
  2. PARACETAMOL [Concomitant]
     Indication: HEADACHE
     Dosage: UNK
     Dates: start: 19930201
  3. BRUFEN ^BOOTS^ [Concomitant]
     Indication: NEURALGIA
     Dosage: UNK
     Dates: start: 19990916
  4. ACTIVELLE [Concomitant]
     Indication: BLOOD LUTEINISING HORMONE DECREASED
     Dosage: UNK
     Dates: start: 20020415
  5. ACTIVELLE [Concomitant]
     Indication: BLOOD FOLLICLE STIMULATING HORMONE DECREASED
  6. ACTIVELLE [Concomitant]
     Indication: OVARIAN DISORDER
  7. NASONEX [Concomitant]
     Indication: HYPERSENSITIVITY
     Dosage: UNK
     Dates: start: 20020916
  8. SELOKEN ZOC [Concomitant]
     Indication: ESSENTIAL HYPERTENSION
     Dosage: UNK
     Dates: start: 20021002
  9. ARTROX [Concomitant]
     Indication: ANTIINFLAMMATORY THERAPY
     Dosage: UNK
     Dates: start: 20021209
  10. TRIATEC [Concomitant]
     Indication: ESSENTIAL HYPERTENSION
     Dosage: UNK
     Dates: start: 20021221
  11. NEXIUM [Concomitant]
     Indication: GASTRITIS
     Dosage: UNK
     Dates: start: 20021020
  12. NEXIUM [Concomitant]
     Indication: DUODENITIS
  13. KLACID [Concomitant]
     Indication: ANTIBIOTIC THERAPY
     Dosage: UNK
     Dates: start: 20031118
  14. SPEKTRAMOX [Concomitant]
     Indication: ANTIBIOTIC THERAPY
     Dosage: UNK
     Dates: start: 20031118
  15. IMDUR [Concomitant]
     Indication: CARDIOSPASM
     Dosage: UNK
     Dates: start: 20040209
  16. PRIMPERAN [Concomitant]
     Indication: CARDIOSPASM
     Dosage: UNK
     Dates: start: 20040209
  17. HYDROCORTISONE [Concomitant]
     Indication: BLOOD CORTICOTROPHIN DECREASED
     Dosage: UNK
     Dates: start: 20010116
  18. STILNOCT [Concomitant]
     Indication: SLEEP DISORDER
     Dosage: UNK
     Dates: start: 20030415
  19. NORVASC [Concomitant]
     Indication: ESSENTIAL HYPERTENSION
     Dosage: UNK
     Dates: start: 19980128
  20. LEVAXIN [Concomitant]
     Indication: BLOOD THYROID STIMULATING HORMONE DECREASED
     Dosage: UNK
     Dates: start: 20031204
  21. CYTOTEC [Concomitant]
     Indication: GASTRIC DISORDER
     Dosage: UNK
     Dates: start: 19990915
  22. LASIX RETARD [Concomitant]
     Indication: HYPERTENSION
     Dosage: UNK
     Dates: start: 19971224

REACTIONS (1)
  - Oesophageal spasm [Unknown]
